FAERS Safety Report 9311660 (Version 1)
Quarter: 2013Q2

REPORT INFORMATION
  Report Type: Spontaneous
  Country: IT (occurrence: IT)
  Receive Date: 20130528
  Receipt Date: 20130531
  Transmission Date: 20140414
  Serious: Yes (Hospitalization)
  Sender: FDA-Public Use
  Company Number: IT-009507513-1305ITA008282

PATIENT
  Age: 4 Year
  Sex: Female

DRUGS (1)
  1. SINVACOR 40 MG COMPRESSE RIVESTITE CON FILM [Suspect]
     Dosage: 40 MG, ONCE
     Route: 048
     Dates: start: 20130120, end: 20130120

REACTIONS (2)
  - Accidental overdose [Unknown]
  - No adverse event [Unknown]
